FAERS Safety Report 24677124 (Version 1)
Quarter: 2024Q4

REPORT INFORMATION
  Report Type: Report from Study
  Country: CO (occurrence: CO)
  Receive Date: 20241129
  Receipt Date: 20241129
  Transmission Date: 20250115
  Serious: Yes (Hospitalization, Other)
  Sender: ABBVIE
  Company Number: CO-ABBVIE-6021786

PATIENT
  Age: 86 Year
  Sex: Female

DRUGS (2)
  1. VENETOCLAX [Suspect]
     Active Substance: VENETOCLAX
     Indication: Acute myeloid leukaemia
     Dosage: 100 MILLIGRAM
     Route: 048
     Dates: start: 20241018, end: 20241114
  2. AZACITIDINE [Concomitant]
     Active Substance: AZACITIDINE
     Indication: Acute myeloid leukaemia
     Dosage: 75 MG/ M2:122 MG SUBCUTANEOUSLY EVERY DAY, 1 TO 7
     Route: 058
     Dates: start: 20241018, end: 20241114

REACTIONS (14)
  - Febrile neutropenia [Recovered/Resolved]
  - Pericardial effusion [Unknown]
  - Spinal osteoarthritis [Unknown]
  - Atelectasis [Unknown]
  - Asthenia [Recovered/Resolved]
  - Arteriosclerosis coronary artery [Unknown]
  - Emphysema [Unknown]
  - Bronchopulmonary aspergillosis [Unknown]
  - Asthenia [Recovered/Resolved]
  - Hiatus hernia [Unknown]
  - Pulmonary hypertension [Unknown]
  - Emphysema [Unknown]
  - Aortic arteriosclerosis [Unknown]
  - Pulmonary artery dilatation [Unknown]

NARRATIVE: CASE EVENT DATE: 20240823
